FAERS Safety Report 4352866-1 (Version None)
Quarter: 2004Q2

REPORT INFORMATION
  Report Type: 
  Country: None (occurrence: None)
  Receive Date: 20040429
  Receipt Date: 20040419
  Transmission Date: 20050107
  Serious: Yes (Other)
  Sender: FDA-Public Use
  Company Number: US-JNJFOC-20040404255

PATIENT
  Age: 51 Year
  Sex: Male

DRUGS (3)
  1. REMICADE [Suspect]
     Indication: CROHN'S DISEASE
     Dosage: FIRST DOSE
     Dates: start: 20040401
  2. PREDNISONE [Concomitant]
  3. DURAGESIC [Concomitant]

REACTIONS (7)
  - BLINDNESS [None]
  - BURNING SENSATION [None]
  - HEADACHE [None]
  - MUSCULAR WEAKNESS [None]
  - NECK PAIN [None]
  - PAIN IN EXTREMITY [None]
  - VISUAL FIELD DEFECT [None]
